FAERS Safety Report 7291835-9 (Version None)
Quarter: 2011Q1

REPORT INFORMATION
  Report Type: 
  Country: None (occurrence: None)
  Receive Date: 20110214
  Receipt Date: 20110131
  Transmission Date: 20110831
  Serious: Yes (Death, Life-Threatening)
  Sender: FDA-Public Use
  Company Number: US-ROCHE-693181

PATIENT
  Age: 76 Year
  Sex: Female
  Weight: 103 kg

DRUGS (3)
  1. PACLITAXEL [Suspect]
     Indication: OVARIAN EPITHELIAL CANCER
     Dosage: FREQUENCY: OVER 3 HOURS ON DAY 1 OF 21 DAYS CYCLE, TOTAL DOSE: 350 MG
     Route: 042
     Dates: start: 20090818, end: 20090818
  2. CARBOPLATIN [Suspect]
     Indication: OVARIAN EPITHELIAL CANCER
     Dosage: DOSE: 5 AUC OVER 30 MINUTES ON DAY 1 OF 21 DAYS CYCLE, TOTAL DOSE: 391 MG
     Route: 042
     Dates: start: 20090818, end: 20090818
  3. BEVACIZUMAB [Suspect]
     Indication: OVARIAN EPITHELIAL CANCER
     Dosage: FREQUENCY: OVER 30-90 MINUTES, ON DAY 1 OF 21 DAYS CYCLE, TOTAL DOSE: 1545 MG
     Route: 042
     Dates: start: 20090818, end: 20090818

REACTIONS (5)
  - DEATH [None]
  - NAUSEA [None]
  - CORONARY ARTERY DISEASE [None]
  - ATRIAL FIBRILLATION [None]
  - ASTHENIA [None]
